FAERS Safety Report 9314383 (Version 1)
Quarter: 2013Q2

REPORT INFORMATION
  Report Type: Spontaneous
  Country: DE (occurrence: DE)
  Receive Date: 20130529
  Receipt Date: 20130529
  Transmission Date: 20140414
  Serious: Yes (Hospitalization)
  Sender: FDA-Public Use
  Company Number: DE-BAYER-2013-065569

PATIENT
  Age: 71 Year
  Sex: Male
  Weight: 60 kg

DRUGS (1)
  1. AVALOX [Suspect]
     Indication: BRONCHITIS
     Dosage: DAILY DOSE 400 MG
     Route: 048
     Dates: start: 20130301, end: 20130305

REACTIONS (3)
  - Dysuria [Recovering/Resolving]
  - Somnolence [Recovering/Resolving]
  - Tendonitis [Recovering/Resolving]
